FAERS Safety Report 7494928-6 (Version None)
Quarter: 2011Q2

REPORT INFORMATION
  Report Type: 
  Country: None (occurrence: None)
  Receive Date: 20110520
  Receipt Date: 20110509
  Transmission Date: 20111010
  Serious: Yes (Death)
  Sender: FDA-Public Use
  Company Number: NL-UCBSA-032449

PATIENT
  Age: 67 Year
  Sex: Male

DRUGS (1)
  1. CIMZIA [Suspect]
     Indication: RHEUMATOID ARTHRITIS
     Dosage: WEEK 0, 2 AND 4 TWO SC INJECTION AFTER THAT 1 SC INJECTION EVERY 2 WEEKS
     Route: 058
     Dates: start: 20101110, end: 20110125

REACTIONS (4)
  - POST PROCEDURAL COMPLICATION [None]
  - MALAISE [None]
  - DIZZINESS [None]
  - AORTIC INJURY [None]
